FAERS Safety Report 14953419 (Version 1)
Quarter: 2018Q2

REPORT INFORMATION
  Report Type: Spontaneous
  Country: US (occurrence: US)
  Receive Date: 20180530
  Receipt Date: 20180530
  Transmission Date: 20180711
  Serious: Yes (Hospitalization)
  Sender: FDA-Public Use
  Company Number: US-JNJFOC-20180531199

PATIENT

DRUGS (1)
  1. XARELTO [Suspect]
     Active Substance: RIVAROXABAN
     Indication: PRODUCT USED FOR UNKNOWN INDICATION
     Dosage: DOSAGE: 15 MG BID FOR 3 MONTHS
     Route: 048

REACTIONS (3)
  - Inappropriate schedule of drug administration [Unknown]
  - Haemoglobin decreased [Unknown]
  - Off label use [Unknown]
